FAERS Safety Report 16286658 (Version 3)
Quarter: 2020Q3

REPORT INFORMATION
  Report Type: Spontaneous
  Country: CH (occurrence: CH)
  Receive Date: 20190508
  Receipt Date: 20200910
  Transmission Date: 20201102
  Serious: Yes (Other)
  Sender: FDA-Public Use
  Company Number: CH-ASTRAZENECA-2019SE67062

PATIENT
  Age: 25564 Day
  Sex: Male

DRUGS (26)
  1. SUPRADYN [Concomitant]
     Active Substance: ASCORBIC ACID\MINERALS\VITAMINS
     Dates: start: 20190417
  2. ENTRESTO [Concomitant]
     Active Substance: SACUBITRIL\VALSARTAN
     Dates: start: 20190424
  3. MG 5?GRANORAL [Concomitant]
     Dates: start: 20190417
  4. FOLIC ACID. [Concomitant]
     Active Substance: FOLIC ACID
     Dates: start: 20190417
  5. BELOC ZOK [Concomitant]
     Active Substance: METOPROLOL SUCCINATE
     Dates: start: 20190417
  6. ENTRESTO [Concomitant]
     Active Substance: SACUBITRIL\VALSARTAN
     Dates: end: 20190411
  7. LASIX [Concomitant]
     Active Substance: FUROSEMIDE
     Dates: end: 20190411
  8. CALCIMAGON D3 [Concomitant]
     Active Substance: CALCIUM\CHOLECALCIFEROL
  9. NEXIUM [Suspect]
     Active Substance: ESOMEPRAZOLE MAGNESIUM
     Route: 048
     Dates: start: 20190412, end: 20190424
  10. ASPIRIN CARDIO [Suspect]
     Active Substance: ASPIRIN
     Route: 048
     Dates: start: 20190410
  11. TAZOBAC [Concomitant]
     Active Substance: PIPERACILLIN SODIUM\TAZOBACTAM SODIUM
     Dates: start: 20190414, end: 20190421
  12. LASIX [Concomitant]
     Active Substance: FUROSEMIDE
     Dates: start: 20190417, end: 20190418
  13. CRESTOR [Concomitant]
     Active Substance: ROSUVASTATIN CALCIUM
     Dates: start: 20190417
  14. IPRAMOL [Concomitant]
     Active Substance: ALBUTEROL SULFATE\IPRATROPIUM BROMIDE
     Dates: start: 20190417
  15. CALCIPARINE [Concomitant]
     Active Substance: HEPARIN CALCIUM
     Dates: start: 20190417
  16. SEVREDOL [Concomitant]
     Active Substance: MORPHINE
     Dosage: AS NECESSARY
     Dates: start: 20190420
  17. OMEPRAZOLE. [Concomitant]
     Active Substance: OMEPRAZOLE
     Dates: end: 20190411
  18. NEXIUM [Suspect]
     Active Substance: ESOMEPRAZOLE MAGNESIUM
     Route: 048
     Dates: start: 20190412, end: 20190424
  19. BELOC ZOK [Concomitant]
     Active Substance: METOPROLOL SUCCINATE
     Dates: end: 20190411
  20. SIMDAX [Concomitant]
     Active Substance: LEVOSIMENDAN
     Dates: start: 20190415, end: 20190416
  21. FLUIMUCIL [Concomitant]
     Active Substance: ACETYLCYSTEINE
     Dates: start: 20190417, end: 20190419
  22. ALDACTONE [Concomitant]
     Active Substance: SPIRONOLACTONE
     Dates: start: 20190418
  23. MOVICOL [Concomitant]
     Active Substance: POLYETHYLENE GLYCOL 3350\POTASSIUM CHLORIDE\SODIUM BICARBONATE\SODIUM CHLORIDE
     Dates: start: 20190422
  24. PREDNISONE. [Suspect]
     Active Substance: PREDNISONE
     Route: 048
  25. TORASEMIDE [Concomitant]
     Active Substance: TORSEMIDE
     Dates: start: 20190414
  26. FERRUM [Concomitant]
     Active Substance: FERROUS FUMARATE
     Dates: start: 20190417

REACTIONS (1)
  - Cholestatic liver injury [Recovering/Resolving]

NARRATIVE: CASE EVENT DATE: 20190414
